FAERS Safety Report 24630804 (Version 3)
Quarter: 2025Q1

REPORT INFORMATION
  Report Type: Spontaneous
  Country: CA (occurrence: CA)
  Receive Date: 20241118
  Receipt Date: 20250203
  Transmission Date: 20250408
  Serious: Yes (Hospitalization, Other)
  Sender: PFIZER
  Company Number: CA-PFIZER INC-202400001468

PATIENT
  Age: 31 Year
  Sex: Female

DRUGS (16)
  1. RUXIENCE [Suspect]
     Active Substance: RITUXIMAB-PVVR
     Indication: Granulomatosis with polyangiitis
     Route: 042
     Dates: start: 20230111, end: 20230126
  2. RUXIENCE [Suspect]
     Active Substance: RITUXIMAB-PVVR
  3. RUXIENCE [Suspect]
     Active Substance: RITUXIMAB-PVVR
     Route: 042
     Dates: start: 20240124
  4. RUXIENCE [Suspect]
     Active Substance: RITUXIMAB-PVVR
     Route: 042
     Dates: start: 20240213
  5. RUXIENCE [Suspect]
     Active Substance: RITUXIMAB-PVVR
     Route: 042
     Dates: start: 20240731, end: 20240813
  6. RUXIENCE [Suspect]
     Active Substance: RITUXIMAB-PVVR
     Route: 042
     Dates: start: 20240813
  7. RUXIENCE [Suspect]
     Active Substance: RITUXIMAB-PVVR
     Route: 042
     Dates: start: 20241106, end: 20241127
  8. BUPROPION HYDROCHLORIDE [Concomitant]
     Active Substance: BUPROPION HYDROCHLORIDE
  9. GLICLAZIDE [Concomitant]
     Active Substance: GLICLAZIDE
  10. METFORMIN [Concomitant]
     Active Substance: METFORMIN HYDROCHLORIDE
  11. METOPROLOL [Concomitant]
     Active Substance: METOPROLOL
  12. OMEPRAZOLE [Concomitant]
     Active Substance: OMEPRAZOLE
  13. ORILISSA [Concomitant]
     Active Substance: ELAGOLIX SODIUM
  14. PREGABALIN [Concomitant]
     Active Substance: PREGABALIN
  15. RIVAROXABAN [Concomitant]
     Active Substance: RIVAROXABAN
  16. PREDNISONE [Concomitant]
     Active Substance: PREDNISONE
     Dates: start: 20250125

REACTIONS (7)
  - Condition aggravated [Not Recovered/Not Resolved]
  - Pulmonary haemorrhage [Unknown]
  - Drug ineffective [Unknown]
  - Malaise [Unknown]
  - Ear infection [Unknown]
  - Pharyngitis [Unknown]
  - Pain in extremity [Unknown]

NARRATIVE: CASE EVENT DATE: 20230101
